FAERS Safety Report 15505632 (Version 1)
Quarter: 2018Q4

REPORT INFORMATION
  Report Type: Report from Study
  Country: ES (occurrence: ES)
  Receive Date: 20181016
  Receipt Date: 20181016
  Transmission Date: 20190205
  Serious: Yes (Life-Threatening, Hospitalization)
  Sender: FDA-Public Use
  Company Number: ES-ACCORD-073198

PATIENT
  Age: 50 Year
  Sex: Male
  Weight: 71 kg

DRUGS (3)
  1. PANITUMUMAB [Suspect]
     Active Substance: PANITUMUMAB
     Indication: ADENOCARCINOMA OF COLON
     Dosage: 460 MG, Q2WK
     Route: 042
     Dates: start: 20170526
  2. FLUOROURACIL. [Suspect]
     Active Substance: FLUOROURACIL
     Indication: ADENOCARCINOMA OF COLON
     Dosage: 4700 MG, Q2WK?ALSO RECEIVED 780 MG Q2W IV BOLUS
     Route: 042
     Dates: start: 20170526
  3. OXALIPLATIN. [Suspect]
     Active Substance: OXALIPLATIN
     Indication: ADENOCARCINOMA OF COLON
     Dosage: 170 MG, Q2WK
     Route: 042
     Dates: start: 20170526

REACTIONS (1)
  - Febrile neutropenia [Recovered/Resolved]

NARRATIVE: CASE EVENT DATE: 20171019
